FAERS Safety Report 7487544-3 (Version None)
Quarter: 2011Q1

REPORT INFORMATION
  Report Type: 
  Country: None (occurrence: None)
  Receive Date: 20110309
  Receipt Date: 20101103
  Transmission Date: 20110831
  Serious: No
  Sender: FDA-Public Use
  Company Number: 2010SP058347

PATIENT
  Age: 14 Year
  Sex: Male

DRUGS (1)
  1. SAPHRIS [Suspect]
     Indication: PRODUCT USED FOR UNKNOWN INDICATION
     Dosage: 5 MG; BID; SL
     Route: 060

REACTIONS (3)
  - TREATMENT NONCOMPLIANCE [None]
  - ORAL DISCOMFORT [None]
  - SALIVARY HYPERSECRETION [None]
